FAERS Safety Report 12776317 (Version 3)
Quarter: 2016Q4

REPORT INFORMATION
  Report Type: Spontaneous
  Country: US (occurrence: US)
  Receive Date: 20160923
  Receipt Date: 20161017
  Transmission Date: 20170207
  Serious: No
  Sender: FDA-Public Use
  Company Number: US-ASTRAZENECA-2016SE64985

PATIENT
  Age: 21293 Day
  Sex: Female

DRUGS (5)
  1. METFORMIN [Concomitant]
     Active Substance: METFORMIN HYDROCHLORIDE
     Indication: TYPE 2 DIABETES MELLITUS
     Dosage: TWO TIMES A DAY
     Route: 048
     Dates: start: 2010
  2. INVOKANA [Concomitant]
     Active Substance: CANAGLIFLOZIN
     Indication: TYPE 2 DIABETES MELLITUS
     Dosage: DAILY
     Route: 048
  3. BYDUREON [Suspect]
     Active Substance: EXENATIDE
     Indication: TYPE 2 DIABETES MELLITUS
     Route: 058
     Dates: start: 2016
  4. LANTUS [Concomitant]
     Active Substance: INSULIN GLARGINE
     Indication: TYPE 2 DIABETES MELLITUS
     Route: 058
     Dates: start: 201605
  5. LODIPINE [Concomitant]
     Indication: RENAL DISORDER
     Dosage: DAILY
     Route: 048

REACTIONS (7)
  - Intentional product misuse [Unknown]
  - Needle issue [Unknown]
  - Visual acuity reduced [Unknown]
  - Blood glucose increased [Unknown]
  - Weight decreased [Unknown]
  - Device malfunction [Unknown]
  - Incorrect dose administered by device [Unknown]

NARRATIVE: CASE EVENT DATE: 20160609
